FAERS Safety Report 23114422 (Version 1)
Quarter: 2023Q4

REPORT INFORMATION
  Report Type: Report from Study
  Country: US (occurrence: US)
  Receive Date: 20231027
  Receipt Date: 20231027
  Transmission Date: 20240109
  Serious: Yes (Other)
  Sender: FDA-Public Use
  Company Number: US-ABBVIE-5370655

PATIENT
  Sex: Female
  Weight: 83 kg

DRUGS (2)
  1. RINVOQ [Suspect]
     Active Substance: UPADACITINIB
     Indication: Rheumatoid arthritis
     Dosage: LAST ADMIN DATE-2023
     Route: 048
     Dates: start: 20230522
  2. RINVOQ [Suspect]
     Active Substance: UPADACITINIB
     Indication: Rheumatoid arthritis
     Dosage: TIME INTERVAL: 0.33333333 WEEKS: FIRST ADMIN DATE- 2023, MWF
     Route: 048

REACTIONS (3)
  - Retinal vein occlusion [Unknown]
  - Seborrhoea [Recovering/Resolving]
  - Sebaceous hyperplasia [Unknown]

NARRATIVE: CASE EVENT DATE: 20230101
